FAERS Safety Report 25116966 (Version 2)
Quarter: 2025Q1

REPORT INFORMATION
  Report Type: Other
  Country: GB (occurrence: GB)
  Receive Date: 20250325
  Receipt Date: 20250326
  Transmission Date: 20250409
  Serious: Yes (Other)
  Sender: GLENMARK
  Company Number: None

PATIENT
  Age: 56 Year
  Sex: Female
  Weight: 66 kg

DRUGS (1)
  1. PRAMIPEXOLE DIHYDROCHLORIDE [Suspect]
     Active Substance: PRAMIPEXOLE DIHYDROCHLORIDE
     Indication: Restless legs syndrome
     Dosage: 0.088 MILLIGRAM, TID, 0.088MG THREE TIMES A DAY
     Route: 065

REACTIONS (6)
  - Compulsive shopping [Not Recovered/Not Resolved]
  - Medication error [Unknown]
  - Weight increased [Unknown]
  - Impulsive behaviour [Unknown]
  - Insomnia [Unknown]
  - Restless leg augmentation syndrome [Unknown]

NARRATIVE: CASE EVENT DATE: 20080401
